FAERS Safety Report 25932571 (Version 1)
Quarter: 2025Q4

REPORT INFORMATION
  Report Type: Report from Study
  Country: US (occurrence: US)
  Receive Date: 20251017
  Receipt Date: 20251017
  Transmission Date: 20260117
  Serious: Yes (Other)
  Sender: ROCHE
  Company Number: US-ROCHE-10000411925

PATIENT
  Age: 86 Year
  Sex: Female

DRUGS (10)
  1. ESBRIET [Suspect]
     Active Substance: PIRFENIDONE
     Indication: Idiopathic pulmonary fibrosis
     Dosage: TAKE 3 TABLET(S) BY MOUTH 3 TIMES A DAY
     Route: 048
  2. ESBRIET [Suspect]
     Active Substance: PIRFENIDONE
     Indication: Obstructive sleep apnoea syndrome
  3. ESBRIET [Suspect]
     Active Substance: PIRFENIDONE
     Indication: Chronic respiratory failure
  4. ESBRIET [Suspect]
     Active Substance: PIRFENIDONE
     Indication: Hypoxia
  5. ESBRIET [Suspect]
     Active Substance: PIRFENIDONE
     Indication: Gastrooesophageal reflux disease
  6. ESBRIET [Suspect]
     Active Substance: PIRFENIDONE
     Indication: Hypertension
  7. ESBRIET [Suspect]
     Active Substance: PIRFENIDONE
     Indication: Mood altered
  8. ESBRIET [Suspect]
     Active Substance: PIRFENIDONE
     Indication: Hyponatraemia
  9. ESBRIET [Suspect]
     Active Substance: PIRFENIDONE
     Indication: Major depression
  10. ESBRIET [Suspect]
     Active Substance: PIRFENIDONE
     Indication: Type 2 diabetes mellitus

REACTIONS (1)
  - Renal failure [Unknown]
